FAERS Safety Report 24546741 (Version 10)
Quarter: 2025Q1

REPORT INFORMATION
  Report Type: Report from Study
  Country: JP (occurrence: JP)
  Receive Date: 20241024
  Receipt Date: 20250204
  Transmission Date: 20250408
  Serious: Yes (Death, Life-Threatening, Hospitalization, Other)
  Sender: NOVARTIS
  Company Number: JP-002147023-NVSJ2024JP012556

PATIENT
  Age: 76 Year
  Sex: Male

DRUGS (11)
  1. FABHALTA [Suspect]
     Active Substance: IPTACOPAN HYDROCHLORIDE
     Indication: Paroxysmal nocturnal haemoglobinuria
     Route: 048
     Dates: start: 20240917, end: 20241022
  2. FABHALTA [Suspect]
     Active Substance: IPTACOPAN HYDROCHLORIDE
     Route: 048
     Dates: start: 20241029, end: 20241210
  3. FABHALTA [Suspect]
     Active Substance: IPTACOPAN HYDROCHLORIDE
     Route: 048
     Dates: start: 20241224, end: 20241231
  4. FABHALTA [Suspect]
     Active Substance: IPTACOPAN HYDROCHLORIDE
     Route: 048
     Dates: start: 20250107, end: 20250122
  5. FAMOTIDINE [Concomitant]
     Active Substance: FAMOTIDINE
     Indication: Product used for unknown indication
     Route: 065
  6. FLUTICASONE FUROATE\VILANTEROL TRIFENATATE [Concomitant]
     Active Substance: FLUTICASONE FUROATE\VILANTEROL TRIFENATATE
     Indication: Product used for unknown indication
     Route: 055
  7. JADENU [Concomitant]
     Active Substance: DEFERASIROX
     Indication: Product used for unknown indication
     Route: 065
     Dates: start: 20240917, end: 20250123
  8. ENEVO [Concomitant]
     Indication: Product used for unknown indication
     Route: 065
     Dates: start: 20240917, end: 20250123
  9. OLODATEROL HYDROCHLORIDE\TIOTROPIUM BROMIDE MONOHYDRATE [Concomitant]
     Active Substance: OLODATEROL HYDROCHLORIDE\TIOTROPIUM BROMIDE MONOHYDRATE
     Indication: Product used for unknown indication
     Route: 055
     Dates: start: 20240917, end: 20250123
  10. AUGMENTIN [Concomitant]
     Active Substance: AMOXICILLIN\CLAVULANATE POTASSIUM
     Indication: Product used for unknown indication
     Route: 065
     Dates: start: 20241016, end: 20241022
  11. VONOPRAZAN FUMARATE [Concomitant]
     Active Substance: VONOPRAZAN FUMARATE
     Indication: Product used for unknown indication
     Route: 065
     Dates: start: 20241126, end: 20241212

REACTIONS (8)
  - Death [Fatal]
  - Gastric ulcer haemorrhage [Recovering/Resolving]
  - Abdominal pain upper [Unknown]
  - Lung neoplasm malignant [Unknown]
  - Malignant neoplasm progression [Unknown]
  - Blood loss anaemia [Unknown]
  - Malaise [Unknown]
  - Haemolysis [Unknown]

NARRATIVE: CASE EVENT DATE: 20241022
